FAERS Safety Report 7072447-9 (Version None)
Quarter: 2010Q4

REPORT INFORMATION
  Report Type: 
  Country: None (occurrence: None)
  Receive Date: 20101029
  Receipt Date: 20100128
  Transmission Date: 20110411
  Serious: No
  Sender: FDA-Public Use
  Company Number: A0841877A

PATIENT
  Age: 81 Year
  Sex: Female

DRUGS (17)
  1. ADVAIR DISKUS 100/50 [Suspect]
     Indication: CHRONIC OBSTRUCTIVE PULMONARY DISEASE
     Dosage: 1PUFF TWICE PER DAY
     Route: 055
     Dates: start: 20091101, end: 20091101
  2. SINGULAIR [Concomitant]
  3. ALLEGRA [Concomitant]
  4. LIPITOR [Concomitant]
  5. ZETIA [Concomitant]
  6. FOSAMAX [Concomitant]
  7. SYNTHROID [Concomitant]
  8. PLAVIX [Concomitant]
  9. ASPIRIN [Concomitant]
  10. NEXIUM [Concomitant]
  11. METOPROLOL [Concomitant]
  12. CALCIUM [Concomitant]
  13. ZOCOR [Concomitant]
  14. COMBIVENT [Concomitant]
  15. FLONASE [Concomitant]
  16. IBUPROFEN [Concomitant]
  17. ARTHRITIS MEDICATION [Concomitant]

REACTIONS (4)
  - BACK PAIN [None]
  - DIARRHOEA [None]
  - DYSPHONIA [None]
  - NECK PAIN [None]
